FAERS Safety Report 24094135 (Version 2)
Quarter: 2024Q3

REPORT INFORMATION
  Report Type: Spontaneous
  Country: JP (occurrence: JP)
  Receive Date: 20240716
  Receipt Date: 20240723
  Transmission Date: 20241017
  Serious: No
  Sender: TAKEDA
  Company Number: JP-TAKEDA-2023TJP017540

PATIENT
  Age: 31 Year
  Sex: Female

DRUGS (1)
  1. ENTYVIO [Suspect]
     Active Substance: VEDOLIZUMAB
     Indication: Colitis ulcerative
     Dosage: 300 MILLIGRAM, Q8WEEKS
     Route: 041

REACTIONS (2)
  - Pregnancy [Recovering/Resolving]
  - No adverse event [Recovering/Resolving]
